FAERS Safety Report 26166454 (Version 1)
Quarter: 2025Q4

REPORT INFORMATION
  Report Type: Spontaneous
  Country: CN (occurrence: CN)
  Receive Date: 20251217
  Receipt Date: 20251217
  Transmission Date: 20260117
  Serious: Yes (Other)
  Sender: ROCHE
  Company Number: CN-ROCHE-10000459022

PATIENT
  Sex: Male

DRUGS (2)
  1. XOFLUZA [Suspect]
     Active Substance: BALOXAVIR MARBOXIL
     Indication: Influenza like illness
  2. MOTRIN [Concomitant]
     Active Substance: IBUPROFEN

REACTIONS (4)
  - Hyperpyrexia [Unknown]
  - Oropharyngeal pain [Unknown]
  - Oral pain [Unknown]
  - Intentional product misuse [Unknown]
